FAERS Safety Report 6892792-7 (Version None)
Quarter: 2010Q3

REPORT INFORMATION
  Report Type: 
  Country: None (occurrence: None)
  Receive Date: 20100731
  Receipt Date: 20080923
  Transmission Date: 20110219
  Serious: No
  Sender: FDA-Public Use
  Company Number: US-PFIZER INC-2008080520

PATIENT
  Sex: Female

DRUGS (2)
  1. SULFASALAZINE [Suspect]
     Indication: COLITIS ULCERATIVE
     Dates: start: 20080814
  2. PENICILLIN [Suspect]

REACTIONS (5)
  - HYPERSENSITIVITY [None]
  - INFLUENZA [None]
  - NAUSEA [None]
  - PRURITUS [None]
  - URTICARIA [None]
